FAERS Safety Report 8575578-7 (Version None)
Quarter: 2012Q3

REPORT INFORMATION
  Report Type: 
  Country: None (occurrence: None)
  Receive Date: 20120807
  Receipt Date: 20120730
  Transmission Date: 20120928
  Serious: Yes (Hospitalization)
  Sender: FDA-Public Use
  Company Number: US-US-EMD SERONO, INC.-7151817

PATIENT
  Sex: Female

DRUGS (1)
  1. REBIF [Suspect]
     Indication: PRODUCT USED FOR UNKNOWN INDICATION
     Route: 058
     Dates: start: 20120609, end: 20120725

REACTIONS (4)
  - DRUG HYPERSENSITIVITY [None]
  - STAPHYLOCOCCAL INFECTION [None]
  - HERPES ZOSTER [None]
  - BLISTER [None]
